FAERS Safety Report 25715208 (Version 1)
Quarter: 2025Q3

REPORT INFORMATION
  Report Type: Spontaneous
  Country: US (occurrence: None)
  Receive Date: 20250821
  Receipt Date: 20250821
  Transmission Date: 20251020
  Serious: No
  Sender: FDA-CTU
  Company Number: None

PATIENT
  Age: 74 Year
  Sex: Male

DRUGS (1)
  1. EBGLYSS [Suspect]
     Active Substance: LEBRIKIZUMAB-LBKZ
     Indication: Dermatitis atopic
     Route: 058
     Dates: start: 202505

REACTIONS (5)
  - Gastrointestinal infection [None]
  - Prostatic obstruction [None]
  - Hypotension [None]
  - Urinary tract infection [None]
  - Kidney infection [None]
